FAERS Safety Report 15034535 (Version 5)
Quarter: 2018Q4

REPORT INFORMATION
  Report Type: Spontaneous
  Country: DE (occurrence: DE)
  Receive Date: 20180620
  Receipt Date: 20181119
  Transmission Date: 20190204
  Serious: Yes (Hospitalization, Other)
  Sender: FDA-Public Use
  Company Number: DE-SUN PHARMACEUTICAL INDUSTRIES LTD-2018RR-176110

PATIENT
  Age: 69 Year
  Sex: Female
  Weight: 88 kg

DRUGS (22)
  1. PERTUZUMAB. [Suspect]
     Active Substance: PERTUZUMAB
     Indication: BREAST CANCER METASTATIC
     Dosage: 420 MG, Q3WK DATE OF LAST DOSE PRIOR TO SAE: 18/JUL/2017
     Route: 042
     Dates: start: 20170526
  2. VALSARTAN/HYDROCHLOROTHIAZIDE AHCL [Concomitant]
     Active Substance: HYDROCHLOROTHIAZIDE\VALSARTAN
     Indication: HYPERTENSION
     Dosage: 332.5 MG, UNK
     Route: 065
  3. NOVAMINSULFON [Concomitant]
     Active Substance: METAMIZOLE
     Dosage: 500 MG/ML, UNK
  4. ZOMETA [Concomitant]
     Active Substance: ZOLEDRONIC ACID
     Dosage: 4 MG, Q4WK
     Route: 065
     Dates: start: 20170711
  5. PACLITAXEL. [Suspect]
     Active Substance: PACLITAXEL
     Dosage: 80 MG/M2, Q3W
     Route: 065
     Dates: start: 20170718
  6. NOVAMINSULFON [Concomitant]
     Active Substance: METAMIZOLE
     Dosage: 500 MG/ML
     Route: 065
  7. NOVAMINSULFON [Concomitant]
     Active Substance: METAMIZOLE
     Dosage: UNK;500 MG/ML
     Route: 065
  8. NOVOTHYRAL [Concomitant]
     Active Substance: LEVOTHYROXINE SODIUM\LIOTHYRONINE SODIUM
     Indication: PRODUCT USED FOR UNKNOWN INDICATION
     Dosage: UNK ()
     Route: 065
  9. HERCEPTIN [Suspect]
     Active Substance: TRASTUZUMAB
     Indication: BREAST CANCER METASTATIC
     Dosage: 6 MG/KG, QD DATE OF LAST DOSE PRIOR TO SAE: 18/JUL/2017,
     Route: 042
     Dates: start: 20170526
  10. NOVAMINSULFON [Concomitant]
     Active Substance: METAMIZOLE
     Indication: PAIN
     Dosage: UNK, (500 MG/ML)
     Route: 065
  11. NOVAMINSULFON [Concomitant]
     Active Substance: METAMIZOLE
     Dosage: 500 MG/ML
     Route: 065
  12. NOVAMINSULFON [Concomitant]
     Active Substance: METAMIZOLE
     Indication: PYREXIA
     Dosage: UNK
     Route: 065
  13. NOVAMINSULFON [Concomitant]
     Active Substance: METAMIZOLE
     Dosage: UNK
     Route: 065
  14. LERCANIDIPINA [Concomitant]
     Active Substance: LERCANIDIPINE
     Indication: HYPERTENSION
     Dosage: 10 MG, UNK
     Route: 065
  15. VIGANTOLETTEN [Concomitant]
     Active Substance: CHOLECALCIFEROL
     Indication: PRODUCT USED FOR UNKNOWN INDICATION
     Dosage: UNK ()
     Route: 065
  16. HERCEPTIN [Suspect]
     Active Substance: TRASTUZUMAB
     Indication: PRODUCT USED FOR UNKNOWN INDICATION
     Dosage: 6 MG/KG, QD
     Route: 065
     Dates: start: 20180718
  17. PERTUZUMAB. [Suspect]
     Active Substance: PERTUZUMAB
     Indication: PRODUCT USED FOR UNKNOWN INDICATION
     Dosage: 420 MG, Q3W
     Route: 042
     Dates: start: 20170718
  18. CLEXANE [Concomitant]
     Active Substance: ENOXAPARIN SODIUM
     Indication: PRODUCT USED FOR UNKNOWN INDICATION
     Dosage: 80 MG, UNK
     Route: 065
  19. LETROZOLE. [Suspect]
     Active Substance: LETROZOLE
     Indication: BREAST CANCER
     Dosage: 2.5 MG, QD
     Route: 065
  20. PACLITAXEL. [Suspect]
     Active Substance: PACLITAXEL
     Indication: BREAST CANCER METASTATIC
     Dosage: 80 MG/M2, Q3WK DATE OF LAST DOSE PRIOR TO SAE: 18/JUL/2017
     Route: 065
     Dates: start: 20170526
  21. L-THYROXIN [Concomitant]
     Active Substance: LEVOTHYROXINE SODIUM
     Indication: HYPOTHYROIDISM
     Dosage: 75 MG, UNK
     Route: 065
  22. ZOMETA [Concomitant]
     Active Substance: ZOLEDRONIC ACID
     Indication: PRODUCT USED FOR UNKNOWN INDICATION
     Dosage: 4 MG, QMO
     Route: 065
     Dates: start: 20170816

REACTIONS (12)
  - Muscle spasms [Recovered/Resolved]
  - Toxic epidermal necrolysis [Recovered/Resolved]
  - Diarrhoea [Not Recovered/Not Resolved]
  - Sneezing [Unknown]
  - Polyneuropathy [Not Recovered/Not Resolved]
  - Pyrexia [Recovered/Resolved]
  - Jugular vein thrombosis [Unknown]
  - Pruritus [Recovered/Resolved]
  - Upper respiratory tract infection [Recovered/Resolved]
  - Nail toxicity [Not Recovered/Not Resolved]
  - Epistaxis [Not Recovered/Not Resolved]
  - Prescribed underdose [Unknown]

NARRATIVE: CASE EVENT DATE: 20170526
